FAERS Safety Report 5108886-2 (Version None)
Quarter: 2006Q3

REPORT INFORMATION
  Report Type: 
  Country: None (occurrence: None)
  Receive Date: 20060731
  Receipt Date: 20060503
  Transmission Date: 20061208
  Serious: No
  Sender: FDA-Public Use
  Company Number: 2006PV013187

PATIENT
  Age: 43 Year
  Sex: Female

DRUGS (6)
  1. BYETTA [Suspect]
     Indication: DIABETES MELLITUS NON-INSULIN-DEPENDENT
     Dosage: 10 MCG ; 5MCG  : BID;SC
     Route: 058
     Dates: start: 20051224, end: 20060123
  2. BYETTA [Suspect]
     Indication: DIABETES MELLITUS NON-INSULIN-DEPENDENT
     Dosage: 10 MCG ; 5MCG  : BID;SC
     Route: 058
     Dates: start: 20050124
  3. LANTUS [Concomitant]
  4. PRANDIN [Concomitant]
  5. AMARYL [Concomitant]
  6. AVANDAMET [Concomitant]

REACTIONS (3)
  - BLOOD GLUCOSE INCREASED [None]
  - DRUG INEFFECTIVE [None]
  - GLYCOSYLATED HAEMOGLOBIN INCREASED [None]
